FAERS Safety Report 12275764 (Version 2)
Quarter: 2019Q1

REPORT INFORMATION
  Report Type: Report from Study
  Country: BR (occurrence: BR)
  Receive Date: 20160418
  Receipt Date: 20190228
  Transmission Date: 20190417
  Serious: Yes (Other)
  Sender: FDA-Public Use
  Company Number: BR-ROCHE-1332236

PATIENT
  Age: 54 Year
  Sex: Female
  Weight: 80 kg

DRUGS (18)
  1. LOSARTAN. [Concomitant]
     Active Substance: LOSARTAN
  2. SPIRONOLACTONE. [Concomitant]
     Active Substance: SPIRONOLACTONE
     Route: 065
  3. OMEGA-3 ACIDS [Concomitant]
     Active Substance: OMEGA-3 FATTY ACIDS
  4. SERETIDE [Concomitant]
     Active Substance: FLUTICASONE PROPIONATE\SALMETEROL XINAFOATE
  5. SIMVASTATIN. [Concomitant]
     Active Substance: SIMVASTATIN
     Indication: BLOOD CHOLESTEROL INCREASED
  6. OMEPRAZOLE. [Concomitant]
     Active Substance: OMEPRAZOLE
  7. VITAMIN C [Concomitant]
     Active Substance: ASCORBIC ACID
  8. SIMVASTATIN. [Concomitant]
     Active Substance: SIMVASTATIN
     Indication: BLOOD CHOLESTEROL INCREASED
     Route: 065
  9. COLLAGEN [Concomitant]
     Active Substance: COLLAGEN
  10. MABTHERA [Suspect]
     Active Substance: RITUXIMAB
     Indication: RHEUMATOID ARTHRITIS
     Dosage: MOST RECENT DOSE ON 05/APR/2016
     Route: 042
     Dates: start: 20121009
  11. AMLODIPINE [Concomitant]
     Active Substance: AMLODIPINE BESYLATE
     Indication: HYPERTENSION
     Route: 065
  12. HYDROCHLOROTHIAZIDE. [Concomitant]
     Active Substance: HYDROCHLOROTHIAZIDE
  13. YEAST [Concomitant]
     Active Substance: YEAST
  14. DEPURA [Concomitant]
     Active Substance: CHOLECALCIFEROL
  15. MABTHERA [Suspect]
     Active Substance: RITUXIMAB
     Indication: B-CELL LYMPHOMA
     Route: 042
     Dates: start: 2011, end: 2011
  16. ARADOIS [Concomitant]
     Active Substance: LOSARTAN POTASSIUM
  17. PROPOLIS [Concomitant]
     Active Substance: PROPOLIS WAX
  18. CIPROFLOXACIN. [Suspect]
     Active Substance: CIPROFLOXACIN
     Indication: INFECTION
     Route: 065

REACTIONS (27)
  - Pharyngeal erythema [Recovered/Resolved]
  - Influenza [Recovered/Resolved]
  - Pyrexia [Unknown]
  - Dehydration [Unknown]
  - Pruritus [Unknown]
  - Immunodeficiency [Unknown]
  - Infection [Unknown]
  - Sinusitis [Unknown]
  - Lymphoma [Unknown]
  - Pneumonia [Unknown]
  - Pleural effusion [Unknown]
  - Heart rate increased [Unknown]
  - Diarrhoea [Unknown]
  - Asthenia [Unknown]
  - Feeding disorder [Unknown]
  - Hypertension [Not Recovered/Not Resolved]
  - Asthma [Not Recovered/Not Resolved]
  - Arrhythmia [Not Recovered/Not Resolved]
  - Malaise [Unknown]
  - Rhinitis [Unknown]
  - Blood calcium decreased [Recovered/Resolved]
  - Nausea [Unknown]
  - Oropharyngeal pain [Recovered/Resolved]
  - Hypertension [Unknown]
  - Asthma [Unknown]
  - Vitamin D decreased [Recovered/Resolved]
  - Immunoglobulins decreased [Recovered/Resolved]

NARRATIVE: CASE EVENT DATE: 201408
